FAERS Safety Report 20258292 (Version 1)
Quarter: 2021Q4

REPORT INFORMATION
  Report Type: Spontaneous
  Country: US (occurrence: None)
  Receive Date: 20211229
  Receipt Date: 20211229
  Transmission Date: 20220303
  Serious: No
  Sender: FDA-Public Use
  Company Number: None

PATIENT
  Age: 70 Year
  Sex: Male

DRUGS (2)
  1. CEFEPIME HYDROCHLORIDE [Suspect]
     Active Substance: CEFEPIME HYDROCHLORIDE
     Indication: Infection
     Dosage: OTHER FREQUENCY : OTHER;?
     Dates: start: 202108, end: 202108
  2. ERTAPENEM [Concomitant]
     Active Substance: ERTAPENEM

REACTIONS (1)
  - Hallucination [None]

NARRATIVE: CASE EVENT DATE: 20210826
